FAERS Safety Report 18305754 (Version 1)
Quarter: 2020Q3

REPORT INFORMATION
  Report Type: Spontaneous
  Country: DE (occurrence: DE)
  Receive Date: 20200923
  Receipt Date: 20200923
  Transmission Date: 20201103
  Serious: Yes (Hospitalization)
  Sender: FDA-Public Use
  Company Number: DE-ANIPHARMA-2020-DE-000212

PATIENT
  Age: 83 Year
  Sex: Female

DRUGS (11)
  1. FOSTER [Concomitant]
     Active Substance: BECLOMETHASONE\FORMOTEROL
     Dosage: 100/6 MICROGRAM, TWO TIMES A DAY
     Route: 055
  2. PANTOPRAZOL [Concomitant]
     Active Substance: PANTOPRAZOLE SODIUM
     Dosage: 40 MG QD
     Route: 048
  3. JODID [Concomitant]
     Active Substance: IODINE
     Dosage: 200 UG QD
     Route: 048
  4. INSULIN LISPRO [Concomitant]
     Active Substance: INSULIN LISPRO
     Dosage: 1 IU UNK
     Route: 058
  5. LEVOTHYROXINE+POTASSIUM IODIDE [Concomitant]
     Dosage: 50/150 MICROGRAM, EVERY DAY
     Route: 048
  6. THIAMIN [Concomitant]
     Active Substance: THIAMINE
     Dosage: 100 MG QD
     Route: 048
  7. ACETYLSALICYLSAEURE [Concomitant]
     Active Substance: ASPIRIN
     Dosage: 100 MG QD
     Route: 048
  8. INSULIN DEGLUDEC [Concomitant]
     Active Substance: INSULIN DEGLUDEC
     Dosage: 30 IU QD
     Route: 058
  9. NEBIVOLOL. [Concomitant]
     Active Substance: NEBIVOLOL
     Dosage: 5 MG QD
     Route: 048
  10. BIOTIN [Concomitant]
     Active Substance: BIOTIN
     Dosage: 5 MG QD
     Route: 048
  11. CANDESARTAN CILEXETIL AND HYDROCHLOROTHIAZIDE [Suspect]
     Active Substance: CANDESARTAN CILEXETIL\HYDROCHLOROTHIAZIDE
     Indication: PRODUCT USED FOR UNKNOWN INDICATION
     Dosage: 16/12.5 MILLIGRAM, EVERY DAY
     Route: 048

REACTIONS (6)
  - Cough [Unknown]
  - Nausea [Unknown]
  - General physical health deterioration [Unknown]
  - Dyspnoea [Unknown]
  - Thirst [Unknown]
  - Dizziness [Unknown]
